FAERS Safety Report 11431546 (Version 2)
Quarter: 2015Q3

REPORT INFORMATION
  Report Type: Spontaneous
  Country: JP (occurrence: JP)
  Receive Date: 20150828
  Receipt Date: 20150916
  Transmission Date: 20151125
  Serious: Yes (Other)
  Sender: FDA-Public Use
  Company Number: JP-PFIZER INC-2015287094

PATIENT
  Age: 47 Year
  Sex: Male

DRUGS (2)
  1. LIPITOR [Suspect]
     Active Substance: ATORVASTATIN CALCIUM
     Dosage: 10 MG, 1X/DAY
     Route: 048
     Dates: start: 201407, end: 201407
  2. CELECOX [Suspect]
     Active Substance: CELECOXIB
     Dosage: 400 MG, 1X/DAY
     Route: 048
     Dates: start: 201407, end: 201407

REACTIONS (1)
  - Drug eruption [Unknown]
